FAERS Safety Report 13078954 (Version 5)
Quarter: 2021Q1

REPORT INFORMATION
  Report Type: Report from Study
  Country: IT (occurrence: IT)
  Receive Date: 20170102
  Receipt Date: 20210217
  Transmission Date: 20210419
  Serious: Yes (Other)
  Sender: FDA-Public Use
  Company Number: PHHO2016IT019084

PATIENT
  Age: 50 Year
  Sex: Male

DRUGS (1)
  1. OFATUMUMAB [Suspect]
     Active Substance: OFATUMUMAB
     Indication: B-CELL LYMPHOMA
     Dosage: 1000 MG, QW
     Route: 042
     Dates: start: 20161116, end: 20161214

REACTIONS (1)
  - Paraesthesia [Recovered/Resolved]

NARRATIVE: CASE EVENT DATE: 20161214
